FAERS Safety Report 7527772-1 (Version None)
Quarter: 2011Q2

REPORT INFORMATION
  Report Type: 
  Country: None (occurrence: None)
  Receive Date: 20110512
  Receipt Date: 20110207
  Transmission Date: 20111010
  Serious: No
  Sender: FDA-Public Use
  Company Number: 1000018708

PATIENT
  Age: 56 Year
  Sex: Female
  Weight: 61.2 kg

DRUGS (14)
  1. CHANTIX [Suspect]
     Indication: EX-TOBACCO USER
     Dosage: 0.5 MG (0.5 MG,1 IN 1 D),ORAL ; 0.5 MG (0.5 MG,1 IN 1 D),ORAL ; 0.5 MG (0.5 MG,1 IN 1 D),ORAL
     Route: 048
     Dates: start: 20101101
  2. CHANTIX [Suspect]
     Indication: EX-TOBACCO USER
     Dosage: 0.5 MG (0.5 MG,1 IN 1 D),ORAL ; 0.5 MG (0.5 MG,1 IN 1 D),ORAL ; 0.5 MG (0.5 MG,1 IN 1 D),ORAL
     Route: 048
     Dates: start: 20100501
  3. CHANTIX [Suspect]
     Indication: EX-TOBACCO USER
     Dosage: 0.5 MG (0.5 MG,1 IN 1 D),ORAL ; 0.5 MG (0.5 MG,1 IN 1 D),ORAL ; 0.5 MG (0.5 MG,1 IN 1 D),ORAL
     Route: 048
     Dates: start: 20100801, end: 20100901
  4. OPANA (OXYMORPHONE HYDROCHLORIDE) (OXYMORPHONE HYDROCHLORIDE) [Concomitant]
  5. CYMBALTA (DULOXETINE HYDROCHLORIDE) (DULOXETINE HYDROCHLORIDE) [Concomitant]
  6. ESTROGEN (ESTRADIOL) (ESTRADIOL) [Concomitant]
  7. FOSAMAX [Concomitant]
  8. PAMELOR (NORTRIPTYLINE HYDROCHLORIDE) (NORTRIPTYLINE HYDROCHLORIDE) [Concomitant]
  9. SAVELLA [Suspect]
     Indication: DEPRESSION
     Dosage: 50 MG (25 MG,2 IN 1 D),ORAL
     Route: 048
     Dates: start: 20100924, end: 20100927
  10. SAVELLA [Suspect]
     Indication: FIBROMYALGIA
     Dosage: 50 MG (25 MG,2 IN 1 D),ORAL
     Route: 048
     Dates: start: 20100924, end: 20100927
  11. OYST-CAL-D (CALCIUM CARBONATE) (CALCIUM CARBONATE) [Concomitant]
  12. ROBAXIN (METHOCARBAMOL) (METHOCARBAMOL) [Concomitant]
  13. MELOXICAM [Concomitant]
  14. DILAUDID (HYDROMORPHONE HYDROCHLORIDE) (HYDROMORPHONE HYDROCHLORIDE) [Concomitant]

REACTIONS (6)
  - NIGHTMARE [None]
  - FEAR [None]
  - CRYING [None]
  - ANXIETY [None]
  - SLEEP DISORDER [None]
  - DEPRESSION [None]
